FAERS Safety Report 24253418 (Version 1)
Quarter: 2024Q3

REPORT INFORMATION
  Report Type: Spontaneous
  Country: US (occurrence: None)
  Receive Date: 20240827
  Receipt Date: 20240827
  Transmission Date: 20241017
  Serious: Yes (Hospitalization)
  Sender: ASTRAZENECA
  Company Number: 2024A188778

PATIENT

DRUGS (1)
  1. SYMBICORT [Suspect]
     Active Substance: BUDESONIDE\FORMOTEROL FUMARATE DIHYDRATE
     Indication: Chronic obstructive pulmonary disease
     Dosage: 160 UG/INHAL TWO TIMES A DAY
     Route: 055

REACTIONS (9)
  - Illness [Unknown]
  - Dyspnoea [Unknown]
  - Nervousness [Unknown]
  - Feeding disorder [Unknown]
  - Arthritis [Unknown]
  - Fatigue [Unknown]
  - Device use issue [Unknown]
  - Incorrect dose administered by device [Unknown]
  - Device malfunction [Unknown]
